FAERS Safety Report 5091486-0 (Version None)
Quarter: 2006Q3

REPORT INFORMATION
  Report Type: 
  Country: None (occurrence: None)
  Receive Date: 20060829
  Receipt Date: 20060822
  Transmission Date: 20061208
  Serious: Yes (Other)
  Sender: FDA-Public Use
  Company Number: IE-GLAXOSMITHKLINE-B0436088A

PATIENT
  Age: 35 Year
  Sex: Female

DRUGS (2)
  1. IMIGRAN [Suspect]
     Indication: MIGRAINE
     Dosage: 50MG UNKNOWN
     Route: 065
     Dates: start: 20060802
  2. NORIDAY [Concomitant]

REACTIONS (3)
  - HYPOAESTHESIA [None]
  - LARYNGITIS [None]
  - MALAISE [None]
